FAERS Safety Report 5731394-2 (Version None)
Quarter: 2008Q2

REPORT INFORMATION
  Report Type: 
  Country: None (occurrence: None)
  Receive Date: 20080508
  Receipt Date: 20080429
  Transmission Date: 20081010
  Serious: Yes (Other)
  Sender: FDA-Public Use
  Company Number: US-JNJFOC-20080407757

PATIENT
  Age: 78 Year
  Sex: Male
  Weight: 74.84 kg

DRUGS (9)
  1. REMICADE [Suspect]
     Route: 042
  2. REMICADE [Suspect]
     Indication: CROHN'S DISEASE
     Route: 042
  3. VITAMIN D [Concomitant]
  4. CALCIUM [Concomitant]
  5. PEPCID [Concomitant]
  6. FOSAMAX [Concomitant]
  7. PROCRIT [Concomitant]
  8. M.V.I. [Concomitant]
  9. FLOMAX [Concomitant]

REACTIONS (2)
  - GLIOBLASTOMA MULTIFORME [None]
  - RASH [None]
